FAERS Safety Report 9689757 (Version 2)
Quarter: 2013Q4

REPORT INFORMATION
  Report Type: Spontaneous
  Country: JP (occurrence: JP)
  Receive Date: 20131115
  Receipt Date: 20131206
  Transmission Date: 20140711
  Serious: Yes (Hospitalization)
  Sender: FDA-Public Use
  Company Number: JP-JNJFOC-20131107330

PATIENT
  Age: 82 Year
  Sex: Male
  Weight: 37.64 kg

DRUGS (14)
  1. XARELTO [Suspect]
     Indication: CEREBROVASCULAR ACCIDENT PROPHYLAXIS
     Route: 048
     Dates: start: 20131122
  2. XARELTO [Suspect]
     Indication: CEREBROVASCULAR ACCIDENT PROPHYLAXIS
     Route: 048
     Dates: start: 20121213, end: 20131106
  3. XARELTO [Suspect]
     Indication: ATRIAL FIBRILLATION
     Route: 048
     Dates: start: 20121213, end: 20131106
  4. XARELTO [Suspect]
     Indication: ATRIAL FIBRILLATION
     Route: 048
     Dates: start: 20131122
  5. AMLODIN [Concomitant]
     Route: 048
     Dates: start: 20130926, end: 20131106
  6. DIGOSIN [Concomitant]
     Route: 048
     Dates: start: 20121213, end: 20131128
  7. TAKEPRON [Concomitant]
     Route: 048
     Dates: start: 20121213
  8. CELECOXIB [Concomitant]
     Route: 048
     Dates: start: 20131031, end: 20131106
  9. METHYCOBAL [Concomitant]
     Route: 048
     Dates: start: 20130801, end: 20131106
  10. MERISLON [Concomitant]
     Route: 048
     Dates: start: 20130926, end: 20131106
  11. RHYTHMY [Concomitant]
     Route: 048
     Dates: start: 20130207, end: 20131114
  12. ROZEREM [Concomitant]
     Route: 048
     Dates: start: 20130207
  13. LUNESTA [Concomitant]
     Route: 048
     Dates: start: 20130926
  14. PLETAAL [Concomitant]
     Route: 048
     Dates: start: 20121213, end: 20130227

REACTIONS (1)
  - Cerebral infarction [Recovered/Resolved with Sequelae]
